FAERS Safety Report 26083443 (Version 1)
Quarter: 2025Q4

REPORT INFORMATION
  Report Type: Spontaneous
  Country: GB (occurrence: GB)
  Receive Date: 20251124
  Receipt Date: 20251124
  Transmission Date: 20260118
  Serious: Yes (Life-Threatening, Hospitalization, Disabling, Other)
  Sender: NOVO NORDISK
  Company Number: None

PATIENT
  Age: 69 Year
  Sex: Male
  Weight: 103 kg

DRUGS (7)
  1. WEGOVY [Suspect]
     Active Substance: SEMAGLUTIDE
     Indication: Overweight
     Dosage: 1MG
     Dates: end: 202507
  2. AMITRIPTYLINE [Concomitant]
     Active Substance: AMITRIPTYLINE
     Indication: Back pain
     Dosage: UNK
     Dates: start: 20230608
  3. AMLODIPINE [Concomitant]
     Active Substance: AMLODIPINE BESYLATE
     Indication: Hypertension
     Dosage: UNK
     Dates: start: 20231030
  4. ATORVASTATIN [Concomitant]
     Active Substance: ATORVASTATIN
     Indication: Blood cholesterol increased
     Dosage: UNK
     Dates: start: 20230724
  5. TRAMADOL [Concomitant]
     Active Substance: TRAMADOL
     Indication: Pain
     Dosage: UNK
     Dates: start: 20230530
  6. SOLIFENACIN [Concomitant]
     Active Substance: SOLIFENACIN
     Dosage: UNK
     Dates: start: 20200108
  7. TELMISARTAN [Concomitant]
     Active Substance: TELMISARTAN
     Indication: Hypertension
     Dosage: UNK
     Dates: start: 20110209

REACTIONS (15)
  - Blood lactic acid increased [Unknown]
  - Bloody discharge [Unknown]
  - Colon gangrene [Unknown]
  - Intestinal ischaemia [Recovering/Resolving]
  - Megacolon [Unknown]
  - Gastrointestinal necrosis [Unknown]
  - Abdominal pain [Unknown]
  - Constipation [Unknown]
  - Body temperature increased [Unknown]
  - Vomiting [Unknown]
  - Urinary retention [Unknown]
  - Omental necrosis [Unknown]
  - Faecaloma [Unknown]
  - Diverticulitis [Unknown]
  - Spleen disorder [Unknown]

NARRATIVE: CASE EVENT DATE: 20251109
